FAERS Safety Report 8427079 (Version 2)
Quarter: 2013Q4

REPORT INFORMATION
  Report Type: Spontaneous
  Country: US (occurrence: US)
  Receive Date: 20120227
  Receipt Date: 20131031
  Transmission Date: 20140711
  Serious: Yes (Life-Threatening, Hospitalization, Disabling)
  Sender: FDA-Public Use
  Company Number: US-BAYER-2012-017035

PATIENT
  Age: 18 Year
  Sex: Female

DRUGS (8)
  1. YASMIN [Suspect]
  2. YAZ [Suspect]
  3. OCELLA [Suspect]
  4. GIANVI [Suspect]
  5. VALIUM [Concomitant]
     Dosage: 2 MG, UNK
     Route: 048
  6. OXYCODONE [Concomitant]
  7. KEFLEX [Concomitant]
  8. TUMS [CALCIUM CARBONATE] [Concomitant]

REACTIONS (11)
  - Pulmonary embolism [None]
  - Cholecystitis chronic [None]
  - Bile duct stone [None]
  - Pulmonary embolism [None]
  - Injury [None]
  - Pain [None]
  - General physical health deterioration [None]
  - Anxiety [None]
  - Emotional distress [None]
  - Anhedonia [None]
  - Pain [None]
